FAERS Safety Report 9985874 (Version 1)
Quarter: 2014Q1

REPORT INFORMATION
  Report Type: Report from Study
  Country: US (occurrence: US)
  Receive Date: 20140307
  Receipt Date: 20140307
  Transmission Date: 20141002
  Serious: No
  Sender: FDA-Public Use
  Company Number: US-ABBVIE-13P-163-1087722-00

PATIENT
  Age: 28 Year
  Sex: Female

DRUGS (7)
  1. HUMIRA [Suspect]
     Indication: PSORIATIC ARTHROPATHY
     Route: 058
     Dates: start: 20130508
  2. LINZESS [Concomitant]
     Indication: IRRITABLE BOWEL SYNDROME
     Dosage: 290 MCG DAILY
  3. LEVOTHYROXINE [Concomitant]
     Indication: HORMONE REPLACEMENT THERAPY
     Dosage: 200 MCG DAILY
  4. IBUPROFEN [Concomitant]
     Indication: ARTHRALGIA
  5. FLEXERIL [Concomitant]
     Indication: ARTHRALGIA
  6. TUMS [Concomitant]
     Indication: BLOOD CALCIUM
  7. B-12 [Concomitant]
     Indication: PRODUCT USED FOR UNKNOWN INDICATION

REACTIONS (6)
  - Muscle tightness [Not Recovered/Not Resolved]
  - Pain in extremity [Not Recovered/Not Resolved]
  - Arthralgia [Not Recovered/Not Resolved]
  - Arthralgia [Not Recovered/Not Resolved]
  - Bone pain [Not Recovered/Not Resolved]
  - Paraesthesia [Not Recovered/Not Resolved]
